FAERS Safety Report 23825880 (Version 12)
Quarter: 2024Q4

REPORT INFORMATION
  Report Type: Spontaneous
  Country: US (occurrence: US)
  Receive Date: 20240507
  Receipt Date: 20241015
  Transmission Date: 20250114
  Serious: Yes (Other)
  Sender: PFIZER
  Company Number: US-PFIZER INC-202400101088

PATIENT
  Age: 52 Year
  Sex: Female
  Weight: 65.76 kg

DRUGS (7)
  1. ESTRING [Suspect]
     Active Substance: ESTRADIOL
     Indication: Menopausal symptoms
     Dosage: 7.5 UG (INSERT 1 RING INTO THE VAGINA 1 TIME FOR 1 DOSE)
     Route: 067
     Dates: start: 202311, end: 20240401
  2. ESTRING [Suspect]
     Active Substance: ESTRADIOL
     Indication: Menopause
  3. TIZANIDINE HYDROCHLORIDE [Concomitant]
     Active Substance: TIZANIDINE HYDROCHLORIDE
     Dosage: 2 MG (QTY:270 DAYS: 90)
  4. DULOXETINE [Concomitant]
     Active Substance: DULOXETINE
     Dosage: 120 MG, DAILY (QTY:180; DAYS: 90)
  5. ROSUVASTATIN CALCIUM [Concomitant]
     Active Substance: ROSUVASTATIN CALCIUM
     Dosage: 20 MG, 1X/DAY QTY:90 DAYS: 90
  6. ROSUVASTATIN [Concomitant]
     Active Substance: ROSUVASTATIN
     Indication: Blood cholesterol increased
     Dosage: 200 MG, ORALLY, TABLET, ONCE DAILY
     Route: 048
  7. NURTEC ODT [Concomitant]
     Active Substance: RIMEGEPANT SULFATE
     Dosage: 75 MG, ORALLY, TABLET
     Route: 048

REACTIONS (7)
  - Vulvovaginal injury [Unknown]
  - Brain injury [Unknown]
  - Vaginal haemorrhage [Unknown]
  - Drug ineffective [Unknown]
  - Therapeutic product effect decreased [Unknown]
  - Product complaint [Unknown]
  - Weight decreased [Unknown]

NARRATIVE: CASE EVENT DATE: 20240401
